FAERS Safety Report 7913173-0 (Version None)
Quarter: 2011Q4

REPORT INFORMATION
  Report Type: 
  Country: None (occurrence: None)
  Receive Date: 20111114
  Receipt Date: 20111111
  Transmission Date: 20120403
  Serious: Yes (Other)
  Sender: FDA-Public Use
  Company Number: US-PFIZER INC-2011277242

PATIENT
  Sex: Female
  Weight: 70.295 kg

DRUGS (3)
  1. LIPITOR [Suspect]
     Indication: BLOOD CHOLESTEROL INCREASED
  2. OMEPRAZOLE [Concomitant]
     Indication: GASTROOESOPHAGEAL REFLUX DISEASE
     Dosage: 2 MG, 2X/DAY
  3. LIPITOR [Suspect]
     Indication: LIPIDS INCREASED
     Dosage: 40 MG, 1X/DAY
     Route: 048
     Dates: start: 19990101

REACTIONS (6)
  - ARTHRITIS [None]
  - BURSITIS [None]
  - ARTHRALGIA [None]
  - BLOOD TRIGLYCERIDES ABNORMAL [None]
  - PAIN IN EXTREMITY [None]
  - FIBROMYALGIA [None]
